FAERS Safety Report 6726118-6 (Version None)
Quarter: 2010Q2

REPORT INFORMATION
  Report Type: 
  Country: None (occurrence: None)
  Receive Date: 20100514
  Receipt Date: 20100510
  Transmission Date: 20101027
  Serious: Yes (Hospitalization, Other)
  Sender: FDA-Public Use
  Company Number: TW-TEVA-234183ISR

PATIENT
  Age: 26 Year
  Sex: Female

DRUGS (6)
  1. CLOZAPINE [Suspect]
     Dosage: {50 MG/DAY
  2. AMISULPRIDE [Suspect]
     Indication: SCHIZOPHRENIA
     Dosage: 200-400MG/DAY
     Dates: start: 20050101
  3. QUETIAPINE [Suspect]
     Dosage: {200MG/DAY
  4. ARIPIPRAZOLE [Suspect]
     Dosage: {10MG/DAY
  5. BIPERIDEN HYDROCHLORIDE TAB [Suspect]
     Route: 030
  6. LORAZEPAM [Suspect]
     Route: 030

REACTIONS (2)
  - MYASTHENIA GRAVIS [None]
  - RESPIRATORY FAILURE [None]
